FAERS Safety Report 19585079 (Version 1)
Quarter: 2021Q3

REPORT INFORMATION
  Report Type: Spontaneous
  Country: US (occurrence: US)
  Receive Date: 20210720
  Receipt Date: 20210720
  Transmission Date: 20211014
  Serious: No
  Sender: FDA-Public Use
  Company Number: US-ROCHE-2815126

PATIENT
  Sex: Female

DRUGS (3)
  1. TECENTRIQ [Suspect]
     Active Substance: ATEZOLIZUMAB
     Indication: ENDOMETRIAL CANCER
  2. TECENTRIQ [Suspect]
     Active Substance: ATEZOLIZUMAB
     Indication: UTERINE CANCER
     Route: 041
     Dates: start: 20210209
  3. TECENTRIQ [Suspect]
     Active Substance: ATEZOLIZUMAB
     Indication: UTERINE CANCER

REACTIONS (3)
  - Off label use [Unknown]
  - Product use in unapproved indication [Unknown]
  - No adverse event [Unknown]
